FAERS Safety Report 4289814-9 (Version None)
Quarter: 2004Q1

REPORT INFORMATION
  Report Type: 
  Country: None (occurrence: None)
  Receive Date: 20040210
  Receipt Date: 20031212
  Transmission Date: 20041129
  Serious: Yes (Death, Hospitalization, Other)
  Sender: FDA-Public Use
  Company Number: BR-BRISTOL-MYERS SQUIBB COMPANY-12456182

PATIENT
  Age: 81 Year
  Sex: Female

DRUGS (3)
  1. TEQUIN [Suspect]
     Indication: RESPIRATORY TRACT INFECTION
     Route: 048
     Dates: start: 20031105, end: 20031111
  2. CORTICOSTEROID [Concomitant]
     Indication: INTERSTITIAL LUNG DISEASE
  3. CYCLOPHOSPHAMIDE [Concomitant]
     Indication: INTERSTITIAL LUNG DISEASE

REACTIONS (1)
  - HYPERGLYCAEMIA [None]
